FAERS Safety Report 14957819 (Version 1)
Quarter: 2018Q2

REPORT INFORMATION
  Report Type: Spontaneous
  Country: GB (occurrence: GB)
  Receive Date: 20180531
  Receipt Date: 20180531
  Transmission Date: 20180711
  Serious: Yes (Life-Threatening, Other)
  Sender: FDA-Public Use
  Company Number: GB-TEVA-2018-GB-899766

PATIENT
  Age: 64 Year
  Sex: Female
  Weight: 79 kg

DRUGS (11)
  1. DAKTARIN [Concomitant]
     Active Substance: MICONAZOLE NITRATE
     Dosage: 10 ML DAILY; 20MG/G
     Route: 050
     Dates: start: 20171228
  2. BACLOFEN. [Concomitant]
     Active Substance: BACLOFEN
     Dosage: 30 MILLIGRAM DAILY;
     Route: 065
     Dates: start: 20171228
  3. CO-DYDRAMOL [Concomitant]
     Active Substance: ACETAMINOPHEN\DIHYDROCODEINE
     Dosage: ONE OR TWO FOUR TIMES A DAY. 10MG/500MG.
     Route: 065
     Dates: start: 20180226, end: 20180322
  4. CANESTEN [Concomitant]
     Active Substance: CLOTRIMAZOLE
     Dosage: 200 MILLIGRAM DAILY; AT NIGHT.
     Route: 065
     Dates: start: 20180213
  5. BISOPROLOL [Concomitant]
     Active Substance: BISOPROLOL
     Dosage: 3.75 MILLIGRAM DAILY;
     Route: 065
     Dates: start: 20180227
  6. VENLAFAXINE [Concomitant]
     Active Substance: VENLAFAXINE HYDROCHLORIDE
     Dosage: 225 MILLIGRAM DAILY; 1 MORNING, 2 AT NIGHT.
     Dates: start: 20171229
  7. BETNOVATE [Concomitant]
     Active Substance: BETAMETHASONE
     Dosage: TWICE A DAY AS DIRECTED.
     Dates: start: 20171228
  8. LEVOTHYROXINE SODIUM. [Concomitant]
     Active Substance: LEVOTHYROXINE SODIUM
     Dosage: 1ALT
     Route: 065
     Dates: start: 20171229
  9. TEGRETOL [Concomitant]
     Active Substance: CARBAMAZEPINE
     Dosage: 200 MILLIGRAM DAILY;
     Route: 065
     Dates: start: 20171107
  10. NAPROXEN. [Suspect]
     Active Substance: NAPROXEN
     Indication: DYSGEUSIA
     Dosage: 1000 MILLIGRAM DAILY;
     Route: 048
  11. LANSOPRAZOLE. [Concomitant]
     Active Substance: LANSOPRAZOLE
     Dosage: 30 MILLIGRAM DAILY;
     Route: 065
     Dates: start: 20171229

REACTIONS (8)
  - Rash [Recovering/Resolving]
  - Muscle tightness [Unknown]
  - Vomiting [Unknown]
  - Urticaria [Unknown]
  - Paraesthesia [Unknown]
  - Hypersensitivity [Recovered/Resolved]
  - Swollen tongue [Unknown]
  - Lip swelling [Unknown]

NARRATIVE: CASE EVENT DATE: 20171119
